FAERS Safety Report 7873076-7 (Version None)
Quarter: 2011Q3

REPORT INFORMATION
  Report Type: 
  Country: None (occurrence: None)
  Receive Date: 20110927
  Receipt Date: 20110412
  Transmission Date: 20111222
  Serious: Yes (Hospitalization)
  Sender: FDA-Public Use
  Company Number: WAES 1104USA01735

PATIENT
  Age: 68 Year
  Sex: Female

DRUGS (9)
  1. COREG CR [Concomitant]
  2. HUMULIN R [Concomitant]
  3. MULTAQ [Concomitant]
  4. BYETTA [Concomitant]
  5. EXFORGE [Concomitant]
  6. PLAVIX [Concomitant]
  7. PRADAXA [Concomitant]
  8. PROTONIX [Concomitant]
  9. VYTORIN [Suspect]
     Indication: BLOOD CHOLESTEROL INCREASED
     Dosage: 10-80MG/DAILY/PO
     Route: 048
     Dates: end: 20110222

REACTIONS (1)
  - MYALGIA [None]
